FAERS Safety Report 6897007-1 (Version None)
Quarter: 2010Q3

REPORT INFORMATION
  Report Type: 
  Country: None (occurrence: None)
  Receive Date: 20100802
  Receipt Date: 20070315
  Transmission Date: 20110219
  Serious: No
  Sender: FDA-Public Use
  Company Number: US-PFIZER INC-2007021848

PATIENT
  Sex: Male

DRUGS (3)
  1. LYRICA [Suspect]
     Dates: start: 20050901
  2. CORTISONE [Concomitant]
  3. ALL OTHER THERAPEUTIC PRODUCTS [Concomitant]

REACTIONS (1)
  - HAIR GROWTH ABNORMAL [None]
